FAERS Safety Report 15493591 (Version 1)
Quarter: 2018Q4

REPORT INFORMATION
  Report Type: Report from Study
  Country: DE (occurrence: DE)
  Receive Date: 20181012
  Receipt Date: 20181012
  Transmission Date: 20190205
  Serious: Yes (Hospitalization)
  Sender: FDA-Public Use
  Company Number: DE-TEVA-2018-DE-963031

PATIENT
  Age: 72 Year
  Sex: Female
  Weight: 58 kg

DRUGS (13)
  1. PANTOPRAZOLE SODIUM SESQUIHYDRATE [Concomitant]
     Active Substance: PANTOPRAZOLE SODIUM
  2. MCP [Concomitant]
     Active Substance: METOCLOPRAMIDE HYDROCHLORIDE
  3. NEBIVOLOL. [Concomitant]
     Active Substance: NEBIVOLOL
  4. BEVACIZUMAB. [Suspect]
     Active Substance: BEVACIZUMAB
     Indication: COLORECTAL CANCER
     Dosage: 300 MG
     Route: 042
     Dates: start: 20140331, end: 20140331
  5. IRINOTECAN HYDROCHLORIDE. [Suspect]
     Active Substance: IRINOTECAN HYDROCHLORIDE
     Indication: COLORECTAL CANCER
     Dosage: 290 MG
     Route: 042
     Dates: start: 20140331, end: 20140331
  6. METOCLOPRAMIDE. [Concomitant]
     Active Substance: METOCLOPRAMIDE
  7. CALCIUM FOLINATE [Suspect]
     Active Substance: LEUCOVORIN CALCIUM
     Dosage: 600 MG
     Route: 042
     Dates: start: 20150302, end: 20150303
  8. BEVACIZUMAB. [Suspect]
     Active Substance: BEVACIZUMAB
     Dosage: 285 MG
     Route: 042
     Dates: start: 20150105, end: 20150105
  9. CALCIUM FOLINATE [Suspect]
     Active Substance: LEUCOVORIN CALCIUM
     Indication: COLORECTAL CANCER
     Dosage: 330 MG
     Route: 042
     Dates: start: 20140331, end: 20140401
  10. IRINOTECAN HYDROCHLORIDE. [Suspect]
     Active Substance: IRINOTECAN HYDROCHLORIDE
     Dosage: 240 MG
     Route: 042
     Dates: start: 20150302, end: 20150302
  11. FLUOROURACIL. [Concomitant]
     Active Substance: FLUOROURACIL
  12. PLANUM [Concomitant]
     Active Substance: DESOGESTREL\ETHINYL ESTRADIOL
  13. NOVAMINSULFON [Concomitant]
     Active Substance: METAMIZOLE

REACTIONS (4)
  - Fatigue [Not Recovered/Not Resolved]
  - Jaundice [Unknown]
  - Abdominal pain upper [Unknown]
  - Vomiting [Unknown]

NARRATIVE: CASE EVENT DATE: 201503
